FAERS Safety Report 11176631 (Version 1)
Quarter: 2015Q2

REPORT INFORMATION
  Report Type: Spontaneous
  Country: CA (occurrence: CA)
  Receive Date: 20150610
  Receipt Date: 20150610
  Transmission Date: 20150821
  Serious: Yes (Other)
  Sender: FDA-Public Use
  Company Number: CA-TEVA-568619ACC

PATIENT
  Age: 70 Year
  Sex: Male

DRUGS (1)
  1. TEVA-PREGABALIN [Suspect]
     Active Substance: PREGABALIN
     Indication: RESTLESS LEGS SYNDROME
     Route: 048

REACTIONS (4)
  - Somnolence [Not Recovered/Not Resolved]
  - Sleep terror [Not Recovered/Not Resolved]
  - Nightmare [Not Recovered/Not Resolved]
  - Dyskinesia [Not Recovered/Not Resolved]
